FAERS Safety Report 9325072 (Version 1)
Quarter: 2013Q2

REPORT INFORMATION
  Report Type: Spontaneous
  Country: IT (occurrence: None)
  Receive Date: 20130530
  Receipt Date: 20130530
  Transmission Date: 20140414
  Serious: Yes (Hospitalization)
  Sender: FDA-Public Use
  Company Number: 2013AP005449

PATIENT
  Sex: Female

DRUGS (2)
  1. PAROXETINE (PAROXETINE) [Suspect]
     Indication: PANIC ATTACK
     Dates: start: 200710
  2. PAROXETINE (PAROXETINE) [Suspect]
     Indication: ANXIETY
     Dates: start: 200710

REACTIONS (3)
  - Hypomania [None]
  - Mania [None]
  - Disinhibition [None]
